FAERS Safety Report 9556517 (Version 3)
Quarter: 2013Q4

REPORT INFORMATION
  Report Type: Spontaneous
  Country: JP (occurrence: None)
  Receive Date: 20130924
  Receipt Date: 20131104
  Transmission Date: 20140711
  Serious: Yes (Other)
  Sender: FDA-Public Use
  Company Number: JP-012992

PATIENT
  Age: 15 Year
  Sex: Female
  Weight: 52 kg

DRUGS (2)
  1. MINIRIN [Suspect]
     Indication: ENURESIS
     Route: 048
     Dates: start: 20130901, end: 20130904
  2. MINIRIN [Suspect]
     Indication: ENURESIS
     Dosage: 10 UG, 2.5 UG X 3 OR 4 TIMES/ DAY NASAL)?
     Dates: start: 20130808, end: 20130831

REACTIONS (12)
  - Hypoaesthesia [None]
  - Oedema peripheral [None]
  - Hypoaesthesia [None]
  - Local swelling [None]
  - Joint swelling [None]
  - Pain [None]
  - Drug ineffective [None]
  - Hypoaesthesia [None]
  - Local swelling [None]
  - Hypoaesthesia [None]
  - Device difficult to use [None]
  - Arthralgia [None]
